FAERS Safety Report 13074677 (Version 1)
Quarter: 2016Q4

REPORT INFORMATION
  Report Type: Spontaneous
  Country: US (occurrence: US)
  Receive Date: 20161230
  Receipt Date: 20161230
  Transmission Date: 20170207
  Serious: No
  Sender: FDA-Public Use
  Company Number: US-TEVA-663057USA

PATIENT
  Age: 98 Year
  Sex: Male

DRUGS (3)
  1. TRAZODONE [Suspect]
     Active Substance: TRAZODONE HYDROCHLORIDE
     Indication: RESTLESSNESS
  2. TRAZODONE [Suspect]
     Active Substance: TRAZODONE HYDROCHLORIDE
     Indication: SLEEP DISORDER
     Dosage: 50 MG; TAKE ONE-HALF OF A TABLET BY MOUTH ONCE DAILY.
     Route: 048
  3. TRAZODONE [Suspect]
     Active Substance: TRAZODONE HYDROCHLORIDE
     Indication: ANXIETY

REACTIONS (3)
  - Confusional state [Unknown]
  - Product use issue [Unknown]
  - Wrong technique in product usage process [Unknown]
